FAERS Safety Report 7356573-2 (Version None)
Quarter: 2011Q1

REPORT INFORMATION
  Report Type: 
  Country: None (occurrence: None)
  Receive Date: 20110316
  Receipt Date: 20110303
  Transmission Date: 20110831
  Serious: Yes (Hospitalization)
  Sender: FDA-Public Use
  Company Number: PHFR2010GB05366

PATIENT

DRUGS (1)
  1. CLOZARIL [Suspect]
     Dosage: UNK
     Route: 048

REACTIONS (1)
  - PSYCHOTIC DISORDER [None]
